FAERS Safety Report 12266177 (Version 1)
Quarter: 2016Q2

REPORT INFORMATION
  Report Type: Spontaneous
  Country: US (occurrence: None)
  Receive Date: 20160413
  Receipt Date: 20160413
  Transmission Date: 20160815
  Serious: Yes (Disabling, Other)
  Sender: FDA-Public Use
  Company Number: None

PATIENT
  Age: 33 Year
  Sex: Female
  Weight: 49.9 kg

DRUGS (2)
  1. NUVIGIL [Concomitant]
     Active Substance: ARMODAFINIL
  2. RITALIN [Suspect]
     Active Substance: METHYLPHENIDATE HYDROCHLORIDE
     Indication: NARCOLEPSY
     Dosage: 1 TABLET(S) TWICE A DAY TAKEN BY MOUTH
     Route: 048

REACTIONS (1)
  - Dermatillomania [None]
